FAERS Safety Report 5563997-2 (Version None)
Quarter: 2007Q4

REPORT INFORMATION
  Report Type: 
  Country: None (occurrence: None)
  Receive Date: 20071217
  Receipt Date: 20071205
  Transmission Date: 20080405
  Serious: Yes (Other)
  Sender: FDA-Public Use
  Company Number: FR-GENENTECH-252367

PATIENT
  Sex: Female
  Weight: 60 kg

DRUGS (7)
  1. XOLAIR [Suspect]
     Indication: ASTHMA
     Dosage: 375 MG, Q2W
     Route: 058
     Dates: start: 20070913, end: 20071012
  2. HUMIRA [Interacting]
     Indication: RHEUMATOID ARTHRITIS
  3. FORADIL [Concomitant]
     Indication: DRUG USE FOR UNKNOWN INDICATION
  4. BUDESONIDE [Concomitant]
     Indication: DRUG USE FOR UNKNOWN INDICATION
  5. SINGULAIR [Concomitant]
     Indication: DRUG USE FOR UNKNOWN INDICATION
  6. XYZAL [Concomitant]
     Indication: DRUG USE FOR UNKNOWN INDICATION
  7. SEROPRAM [Concomitant]
     Indication: DRUG USE FOR UNKNOWN INDICATION

REACTIONS (3)
  - DRUG INTERACTION [None]
  - HYPOTENSION [None]
  - MIGRAINE [None]
